FAERS Safety Report 8985267 (Version 1)
Quarter: 2012Q4

REPORT INFORMATION
  Report Type: 
  Country: US (occurrence: US)
  Receive Date: 20121226
  Receipt Date: 20121226
  Transmission Date: 20130627
  Serious: No
  Sender: FDA-Public Use
  Company Number: US-BAYER-2012-134708

PATIENT
  Age: 71 Year
  Sex: Male
  Weight: 73 kg

DRUGS (5)
  1. ALEVE CAPLET/TABLET,MIDOL EXTENDED RELIEF CAPLET [Suspect]
     Indication: PAIN RELIEF
     Dosage: 1 DF, BID
     Route: 048
     Dates: start: 2011
  2. ANTI-DIABETICS [Concomitant]
     Dosage: UNK
  3. HIGH CHOLESTEROL MEDICATION [Concomitant]
     Dosage: UNK
  4. ANTIHYPERTENSIVES [Concomitant]
     Dosage: UNK
  5. OTHER BRAND 81MG ASPIRIN [Concomitant]
     Dosage: UNK

REACTIONS (2)
  - Somnolence [Recovered/Resolved]
  - Incorrect drug administration duration [None]
